FAERS Safety Report 7933681-6 (Version None)
Quarter: 2011Q4

REPORT INFORMATION
  Report Type: 
  Country: None (occurrence: None)
  Receive Date: 20111122
  Receipt Date: 20111111
  Transmission Date: 20120403
  Serious: Yes (Other)
  Sender: FDA-Public Use
  Company Number: PHHY2011US100748

PATIENT
  Age: 3 Year
  Sex: Female

DRUGS (6)
  1. ALEMTUZUMAB [Concomitant]
     Indication: STEM CELL TRANSPLANT
  2. BUSULFAN [Concomitant]
     Indication: STEM CELL TRANSPLANT
     Dosage: 0.8 TO 1 MG/KG ON DAYS 9 TO 6 BEFORE TRANSPLANTATION EVERY 6 HOURS FOR 16 DOSES
     Route: 042
  3. CYTARABINE [Concomitant]
     Indication: STEM CELL TRANSPLANT
     Dosage: 2 G/M2 FOR 4 DOSES ON DAYS 6 TO 4.
  4. CYCLOSPORINE [Suspect]
     Indication: STEM CELL TRANSPLANT
  5. PREDNISONE TAB [Concomitant]
     Indication: STEM CELL TRANSPLANT
  6. CYCLOPHOSPHAMIDE [Concomitant]
     Indication: STEM CELL TRANSPLANT
     Dosage: 45 MG, DAYS 3 AND 2

REACTIONS (2)
  - LUNG CYST [None]
  - ADENOVIRUS INFECTION [None]
